FAERS Safety Report 18769696 (Version 1)
Quarter: 2021Q1

REPORT INFORMATION
  Report Type: Spontaneous
  Country: US (occurrence: US)
  Receive Date: 20210121
  Receipt Date: 20210121
  Transmission Date: 20210419
  Serious: No
  Sender: FDA-Public Use
  Company Number: US-PFIZER INC-2021036672

PATIENT
  Age: 75 Year
  Sex: Male

DRUGS (1)
  1. INLYTA [Suspect]
     Active Substance: AXITINIB
     Dosage: 5 MG
     Dates: start: 20210106

REACTIONS (6)
  - Eye irritation [Unknown]
  - Rash [Unknown]
  - Burning sensation [Unknown]
  - Pruritus [Unknown]
  - Dry eye [Unknown]
  - Dysphonia [Unknown]

NARRATIVE: CASE EVENT DATE: 202101
